FAERS Safety Report 6911825-2 (Version None)
Quarter: 2010Q3

REPORT INFORMATION
  Report Type: 
  Country: None (occurrence: None)
  Receive Date: 20100806
  Receipt Date: 20070723
  Transmission Date: 20110219
  Serious: No
  Sender: FDA-Public Use
  Company Number: US-PFIZER INC-2007061101

PATIENT
  Sex: Male
  Weight: 81.8 kg

DRUGS (5)
  1. DETROL LA [Suspect]
     Indication: PROSTATOMEGALY
     Route: 048
     Dates: start: 20070719
  2. TAMSULOSIN HCL [Concomitant]
  3. LOVASTATIN [Concomitant]
  4. WELLBUTRIN [Concomitant]
  5. ALL OTHER THERAPEUTIC PRODUCTS [Concomitant]

REACTIONS (3)
  - ABDOMINAL PAIN [None]
  - CONSTIPATION [None]
  - DYSURIA [None]
